FAERS Safety Report 9253696 (Version 3)
Quarter: 2013Q2

REPORT INFORMATION
  Report Type: Spontaneous
  Country: US (occurrence: US)
  Receive Date: 20130425
  Receipt Date: 20130619
  Transmission Date: 20140414
  Serious: Yes (Life-Threatening, Hospitalization, Other)
  Sender: FDA-Public Use
  Company Number: US-009507513-1304USA014519

PATIENT
  Sex: Male
  Weight: 106.12 kg

DRUGS (9)
  1. ISENTRESS [Suspect]
     Indication: HIV INFECTION
     Dosage: 400 MG, BID
     Route: 048
     Dates: start: 20080512
  2. QUINAPRIL HYDROCHLORIDE [Concomitant]
     Dosage: UNK
  3. HYDROCHLOROTHIAZIDE [Concomitant]
     Dosage: UNK
  4. PREZISTA [Concomitant]
     Indication: HIV INFECTION
     Dosage: DOSE = 600 (UNITS UNKNOWN), BID
     Route: 048
     Dates: start: 20070614
  5. NORVIR [Concomitant]
     Indication: HIV INFECTION
     Dosage: DOSE = 100 (UNITS UNKNOWN), BID
     Route: 048
     Dates: start: 20070614
  6. FUZEON [Concomitant]
     Indication: HIV INFECTION
     Dosage: DOSE = 90 (UNITS UNKNOWN), BID
     Route: 058
     Dates: start: 20070104
  7. TRUVADA [Concomitant]
     Dosage: UNK
  8. PLAVIX [Concomitant]
     Indication: CORONARY ARTERY DISEASE
     Dosage: DOSE = 75 (UNITS UNKNOWN), BID
     Route: 048
     Dates: start: 20100328
  9. ASPIRIN [Concomitant]
     Indication: CORONARY ARTERY DISEASE
     Dosage: DOSE = 325 (UNITS UNKNOWN), BID
     Route: 048
     Dates: start: 20120329

REACTIONS (2)
  - Coronary artery occlusion [Recovered/Resolved]
  - Coronary artery bypass [Unknown]
